FAERS Safety Report 5967896-3 (Version None)
Quarter: 2008Q4

REPORT INFORMATION
  Report Type: 
  Country: None (occurrence: None)
  Receive Date: 20081126
  Receipt Date: 20081119
  Transmission Date: 20090506
  Serious: Yes (Hospitalization)
  Sender: FDA-Public Use
  Company Number: DE-NOVOPROD-277361

PATIENT
  Sex: Female
  Weight: 73 kg

DRUGS (4)
  1. NORDITROPIN [Suspect]
     Indication: GROWTH HORMONE DEFICIENCY
     Dosage: .4 MG, QD
     Route: 058
     Dates: start: 20070104, end: 20070918
  2. LEVOTHYROXINE SODIUM [Concomitant]
     Indication: HYPOTHYROIDISM
     Dosage: 100 UG, QD
     Route: 048
  3. VALPROATE SODIUM [Concomitant]
     Indication: CONVULSION
     Dosage: 20 MG, BID
     Route: 048
     Dates: start: 20050101
  4. BIRTH CONTROL PILL [Concomitant]

REACTIONS (1)
  - CONVULSION [None]
